FAERS Safety Report 7688119-3 (Version None)
Quarter: 2011Q3

REPORT INFORMATION
  Report Type: 
  Country: None (occurrence: None)
  Receive Date: 20110817
  Receipt Date: 20110804
  Transmission Date: 20111222
  Serious: Yes (Other)
  Sender: FDA-Public Use
  Company Number: FR-ELI_LILLY_AND_COMPANY-FR201108001419

PATIENT
  Age: 96 Year
  Sex: Female

DRUGS (9)
  1. ZYPREXA [Suspect]
     Indication: DEPRESSION
     Dosage: 5 MG, QD
     Route: 048
     Dates: start: 20110608, end: 20110707
  2. IMOVANE [Concomitant]
  3. ZYVOX [Concomitant]
     Indication: URINARY TRACT INFECTION
     Dosage: 600 MG, BID
     Route: 042
     Dates: start: 20110530, end: 20110614
  4. CITALOPRAM HYDROBROMIDE [Concomitant]
  5. PLAVIX [Concomitant]
  6. BISOPROLOL FUMARATE [Concomitant]
  7. LEVOTHYROXINE SODIUM [Concomitant]
  8. LASIX [Concomitant]
  9. CLONAZEPAM [Concomitant]

REACTIONS (3)
  - PANCYTOPENIA [None]
  - THROMBOCYTOPENIA [None]
  - OFF LABEL USE [None]
